FAERS Safety Report 25472476 (Version 3)
Quarter: 2025Q4

REPORT INFORMATION
  Report Type: Report from Study
  Country: EU (occurrence: EU)
  Receive Date: 20250624
  Receipt Date: 20251006
  Transmission Date: 20260117
  Serious: Yes (Other)
  Sender: ALEXION PHARMACEUTICALS
  Company Number: EU-ASTRAZENECA-202506GLO019052DE

PATIENT
  Age: 69 Year
  Sex: Male
  Weight: 100 kg

DRUGS (7)
  1. DURVALUMAB [Suspect]
     Active Substance: DURVALUMAB
     Indication: Hepatobiliary cancer
     Dosage: 1500 MILLIGRAM, UNK
     Route: 065
     Dates: start: 20250331, end: 20250331
  2. DURVALUMAB [Suspect]
     Active Substance: DURVALUMAB
     Dosage: 1500 MILLIGRAM
     Route: 065
     Dates: start: 20250422, end: 20250422
  3. DURVALUMAB [Suspect]
     Active Substance: DURVALUMAB
     Dosage: 1500 MILLIGRAM
     Route: 065
     Dates: start: 20250429, end: 20250429
  4. DURVALUMAB [Suspect]
     Active Substance: DURVALUMAB
     Dosage: 53 MILLIGRAM
     Route: 065
     Dates: start: 20250512, end: 20250512
  5. DURVALUMAB [Suspect]
     Active Substance: DURVALUMAB
     Dosage: 53 MILLIGRAM
     Route: 065
     Dates: start: 20250519, end: 20250519
  6. DURVALUMAB [Suspect]
     Active Substance: DURVALUMAB
     Dosage: 1500 MILLIGRAM
     Route: 065
     Dates: start: 20250602, end: 20250602
  7. DURVALUMAB [Suspect]
     Active Substance: DURVALUMAB
     Dosage: 1500 MILLIGRAM, UNK
     Route: 065
     Dates: start: 20250610, end: 20250804

REACTIONS (3)
  - Anaemia [Recovered/Resolved]
  - Leukopenia [Recovered/Resolved]
  - Thrombocytopenia [Recovered/Resolved]

NARRATIVE: CASE EVENT DATE: 20250610
